FAERS Safety Report 12499919 (Version 1)
Quarter: 2016Q2

REPORT INFORMATION
  Report Type: Spontaneous
  Country: US (occurrence: US)
  Receive Date: 20160627
  Receipt Date: 20160627
  Transmission Date: 20160815
  Serious: No
  Sender: FDA-Public Use
  Company Number: US-SHIRE-US201607692

PATIENT
  Age: 46 Year
  Sex: Female

DRUGS (4)
  1. LIALDA [Suspect]
     Active Substance: MESALAMINE
     Indication: CROHN^S DISEASE
     Dosage: 4.8 G (4 - 1.2 G TABLETS), OTHER (2 TABLETS IN THE MONING AND 2 IN THE EVENING)
     Route: 048
  2. AZATHIOPRINE. [Concomitant]
     Active Substance: AZATHIOPRINE
     Indication: PRODUCT USED FOR UNKNOWN INDICATION
     Dosage: 15 MG, OTHER (2 TAB/ DAY)
     Route: 065
  3. PRILOSEC [Concomitant]
     Active Substance: OMEPRAZOLE MAGNESIUM
     Indication: PRODUCT USED FOR UNKNOWN INDICATION
     Dosage: 20 MG, 1X/DAY:QD
     Route: 065
  4. ALIGN [Concomitant]
     Active Substance: BIFIDOBACTERIUM LONGUM SUBSP. INFANTIS
     Indication: PRODUCT USED FOR UNKNOWN INDICATION
     Dosage: 1 DF, 1X/DAY:QD
     Route: 065

REACTIONS (4)
  - Product use issue [Not Recovered/Not Resolved]
  - Accidental overdose [Recovered/Resolved]
  - Confusional state [Unknown]
  - Inappropriate schedule of drug administration [Not Recovered/Not Resolved]

NARRATIVE: CASE EVENT DATE: 20160611
